FAERS Safety Report 26130683 (Version 1)
Quarter: 2025Q4

REPORT INFORMATION
  Report Type: Spontaneous
  Country: EU (occurrence: EU)
  Receive Date: 20251208
  Receipt Date: 20251208
  Transmission Date: 20260117
  Serious: Yes (Hospitalization)
  Sender: MYLAN
  Company Number: None

PATIENT
  Age: 32 Year
  Sex: Male
  Weight: 94 kg

DRUGS (8)
  1. ACETAMINOPHEN [Suspect]
     Active Substance: ACETAMINOPHEN
     Indication: Pain
     Dosage: 4 GRAM, QD
     Dates: start: 20251015, end: 20251020
  2. ACETAMINOPHEN [Suspect]
     Active Substance: ACETAMINOPHEN
     Dosage: 4 GRAM, QD
     Route: 048
     Dates: start: 20251015, end: 20251020
  3. ACETAMINOPHEN [Suspect]
     Active Substance: ACETAMINOPHEN
     Dosage: 4 GRAM, QD
     Route: 048
     Dates: start: 20251015, end: 20251020
  4. ACETAMINOPHEN [Suspect]
     Active Substance: ACETAMINOPHEN
     Dosage: 4 GRAM, QD
     Dates: start: 20251015, end: 20251020
  5. CEFTRIAXONE [Suspect]
     Active Substance: CEFTRIAXONE
     Indication: Infection
     Dosage: 2 GRAM, QD
     Dates: start: 20251018, end: 20251018
  6. CEFTRIAXONE [Suspect]
     Active Substance: CEFTRIAXONE
     Dosage: 2 GRAM, QD
     Route: 030
     Dates: start: 20251018, end: 20251018
  7. CEFTRIAXONE [Suspect]
     Active Substance: CEFTRIAXONE
     Dosage: 2 GRAM, QD
     Route: 030
     Dates: start: 20251018, end: 20251018
  8. CEFTRIAXONE [Suspect]
     Active Substance: CEFTRIAXONE
     Dosage: 2 GRAM, QD
     Dates: start: 20251018, end: 20251018

REACTIONS (2)
  - Hepatic cytolysis [Recovering/Resolving]
  - Cholestasis [Recovering/Resolving]

NARRATIVE: CASE EVENT DATE: 20251020
